FAERS Safety Report 9105722 (Version 4)
Quarter: 2013Q2

REPORT INFORMATION
  Report Type: Report from Study
  Country: US (occurrence: US)
  Receive Date: 20130220
  Receipt Date: 20130613
  Transmission Date: 20140414
  Serious: Yes (Other)
  Sender: FDA-Public Use
  Company Number: PHEH2013US003883

PATIENT
  Age: 69 Year
  Sex: Male
  Weight: 68.6 kg

DRUGS (8)
  1. GLEEVEC [Suspect]
     Dosage: 600 MG (1-400MG AND 2-100 MG), EVERYDAY
     Route: 048
  2. KINASE [Suspect]
     Dosage: UNK UKN, UNK
  3. CIPRO [Concomitant]
     Dosage: 250 MG, UNK
  4. PREDNISONE [Concomitant]
  5. ALLOPURINOL [Concomitant]
  6. ATENOLOL [Concomitant]
  7. ZOFRAN [Concomitant]
  8. DASATINIB [Concomitant]

REACTIONS (6)
  - Malignant neoplasm progression [Unknown]
  - Acute lymphocytic leukaemia recurrent [Unknown]
  - Fatigue [Unknown]
  - Nausea [Recovered/Resolved]
  - Diarrhoea [Recovered/Resolved]
  - Drug ineffective [Unknown]
